FAERS Safety Report 4677934-6 (Version None)
Quarter: 2005Q2

REPORT INFORMATION
  Report Type: 
  Country: None (occurrence: None)
  Receive Date: 20050527
  Receipt Date: 20050527
  Transmission Date: 20051028
  Serious: No
  Sender: FDA-Public Use
  Company Number: None

PATIENT
  Sex: Male
  Weight: 78.3 kg

DRUGS (1)
  1. ALIMTA [Suspect]
     Indication: THYMOMA
     Dosage: 500 MG/M2  Q21 DAYS  IV
     Route: 042
     Dates: start: 20050221, end: 20050426

REACTIONS (2)
  - PERFORMANCE STATUS DECREASED [None]
  - PNEUMONITIS [None]
